FAERS Safety Report 9008231 (Version 2)
Quarter: 2014Q3

REPORT INFORMATION
  Report Type: Report from Study
  Country: NL (occurrence: NL)
  Receive Date: 20130111
  Receipt Date: 20140808
  Transmission Date: 20150326
  Serious: Yes (Death, Hospitalization, Other)
  Sender: FDA-Public Use
  Company Number: PHHY2013NL002356

PATIENT
  Sex: Male

DRUGS (3)
  1. FENTANYL. [Concomitant]
     Active Substance: FENTANYL
     Dosage: 50 MG, UNK
  2. ZOMETA [Suspect]
     Active Substance: ZOLEDRONIC ACID
     Indication: METASTASES TO BONE
     Dosage: 4 MG / 100 ML / 1 EVERY 28 DAYS
     Route: 042
     Dates: end: 20121210
  3. OXYNORM [Concomitant]
     Active Substance: OXYCODONE HYDROCHLORIDE
     Dosage: 10 MG, WHEN NECESSARY
     Route: 048

REACTIONS (5)
  - Terminal state [Fatal]
  - Metastases to central nervous system [Unknown]
  - Headache [Unknown]
  - Metastases to bone [Unknown]
  - Pain in extremity [Unknown]

NARRATIVE: CASE EVENT DATE: 20121227
